FAERS Safety Report 18580101 (Version 1)
Quarter: 2020Q4

REPORT INFORMATION
  Report Type: Report from Study
  Country: GB (occurrence: GB)
  Receive Date: 20201204
  Receipt Date: 20201204
  Transmission Date: 20210114
  Serious: Yes (Other)
  Sender: FDA-Public Use
  Company Number: NVSC2020GB322327

PATIENT
  Sex: Male

DRUGS (1)
  1. OMNITROPE [Suspect]
     Active Substance: SOMATROPIN
     Indication: PRODUCT USED FOR UNKNOWN INDICATION
     Dosage: 0.7 MG, QD (ROUTE AS DIRECTED)
     Route: 065
     Dates: start: 20200902

REACTIONS (3)
  - SARS-CoV-2 test positive [Recovered/Resolved]
  - Rhinorrhoea [Unknown]
  - Exposure to communicable disease [Unknown]
